FAERS Safety Report 12857816 (Version 2)
Quarter: 2020Q3

REPORT INFORMATION
  Report Type: Report from Study
  Country: US (occurrence: US)
  Receive Date: 20161018
  Receipt Date: 20200818
  Transmission Date: 20201102
  Serious: Yes (Disabling, Other)
  Sender: FDA-Public Use
  Company Number: US-SA-2015SA151918

PATIENT
  Age: 42 Year
  Sex: Female

DRUGS (2)
  1. ALEMTUZUMAB [Suspect]
     Active Substance: ALEMTUZUMAB
     Indication: MULTIPLE SCLEROSIS
     Dosage: 12 MG, QD
     Route: 041
     Dates: start: 20150914, end: 20150918
  2. SOLU?MEDROL [Concomitant]
     Active Substance: METHYLPREDNISOLONE SODIUM SUCCINATE
     Indication: PREMEDICATION
     Dosage: 1 G
     Route: 065

REACTIONS (14)
  - Drug ineffective [Recovered/Resolved]
  - Swelling [Recovered/Resolved]
  - Productive cough [Unknown]
  - Rash [Unknown]
  - Muscle spasticity [Not Recovered/Not Resolved]
  - Balance disorder [Not Recovered/Not Resolved]
  - Painful respiration [Recovered/Resolved]
  - Headache [Recovered/Resolved]
  - Flushing [Recovered/Resolved]
  - Multiple sclerosis [Recovered/Resolved]
  - Blood pressure increased [Recovered/Resolved]
  - Urticaria [Recovered/Resolved]
  - Gait disturbance [Not Recovered/Not Resolved]
  - Dyspnoea [Unknown]

NARRATIVE: CASE EVENT DATE: 20150914
